FAERS Safety Report 23995404 (Version 1)
Quarter: 2024Q2

REPORT INFORMATION
  Report Type: Spontaneous
  Country: FR (occurrence: FR)
  Receive Date: 20240620
  Receipt Date: 20240620
  Transmission Date: 20240715
  Serious: Yes (Other)
  Sender: FDA-Public Use
  Company Number: None

PATIENT
  Age: 10 Year
  Sex: Female
  Weight: 28 kg

DRUGS (1)
  1. NGENLA [Suspect]
     Active Substance: SOMATROGON-GHLA
     Indication: Blood growth hormone decreased
     Dosage: 20 MG
     Dates: start: 20230901, end: 20240401

REACTIONS (1)
  - Amyotrophy [Not Recovered/Not Resolved]

NARRATIVE: CASE EVENT DATE: 20240202
